FAERS Safety Report 25673241 (Version 1)
Quarter: 2025Q3

REPORT INFORMATION
  Report Type: Spontaneous
  Country: GB (occurrence: GB)
  Receive Date: 20250813
  Receipt Date: 20250813
  Transmission Date: 20251021
  Serious: Yes (Other)
  Sender: ALMUS
  Company Number: None

PATIENT
  Age: 72 Year
  Sex: Female

DRUGS (1)
  1. TIRBANIBULIN [Suspect]
     Active Substance: TIRBANIBULIN
     Indication: Actinic keratosis
     Dosage: APPLY ONCE DAILY FOR 5 CONSECUTIVE DAYS EVERY SIX WEEKS FOR THREE CYCLES
     Dates: start: 20250515, end: 20250521

REACTIONS (1)
  - Rash pruritic [Recovering/Resolving]

NARRATIVE: CASE EVENT DATE: 20250625
